FAERS Safety Report 20712342 (Version 1)
Quarter: 2022Q2

REPORT INFORMATION
  Report Type: Spontaneous
  Country: FR (occurrence: FR)
  Receive Date: 20220415
  Receipt Date: 20220415
  Transmission Date: 20220720
  Serious: Yes (Hospitalization, Other)
  Sender: FDA-Public Use
  Company Number: FR-AFSSAPS-SE20220429

PATIENT
  Age: 81 Year
  Sex: Male
  Weight: 79 kg

DRUGS (4)
  1. ASPIRIN [Suspect]
     Active Substance: ASPIRIN
     Indication: Cardiovascular event prophylaxis
     Dosage: 75 MILLIGRAM, ONCE A DAY
     Route: 048
     Dates: start: 202103
  2. BISOPROLOL [Suspect]
     Active Substance: BISOPROLOL
     Indication: Hypertension
     Dosage: 5 MILLIGRAM, ONCE A DAY
     Route: 048
     Dates: start: 202103
  3. PRAVASTATIN [Suspect]
     Active Substance: PRAVASTATIN
     Indication: Cardiovascular event prophylaxis
     Dosage: UNK
     Route: 048
     Dates: start: 202112
  4. AMILORIDE HCL W/ HYDROCHLOROTHIAZIDE [Suspect]
     Active Substance: AMILORIDE HYDROCHLORIDE\HYDROCHLOROTHIAZIDE
     Indication: Hypertension
     Dosage: 1 DOSAGE FORM, ONCE A DAY
     Route: 048
     Dates: start: 2020, end: 20220311

REACTIONS (1)
  - Immune thrombocytopenia [Recovering/Resolving]

NARRATIVE: CASE EVENT DATE: 20220301
